FAERS Safety Report 14687778 (Version 1)
Quarter: 2018Q1

REPORT INFORMATION
  Report Type: Spontaneous
  Country: US (occurrence: US)
  Receive Date: 20180328
  Receipt Date: 20180328
  Transmission Date: 20180509
  Serious: No
  Sender: FDA-Public Use
  Company Number: US-ASTRAZENECA-2018SE25701

PATIENT
  Age: 25988 Day
  Sex: Female
  Weight: 88.5 kg

DRUGS (3)
  1. CLONIDINE. [Concomitant]
     Active Substance: CLONIDINE
     Indication: BLOOD PRESSURE MEASUREMENT
     Route: 048
     Dates: start: 201708
  2. BENADRYL [Concomitant]
     Active Substance: DIPHENHYDRAMINE HYDROCHLORIDE
  3. PULMICORT FLEXHALER [Suspect]
     Active Substance: BUDESONIDE
     Indication: ASTHMA
     Dosage: 180 UG 2 PUFFS TWICE A DAY
     Route: 055
     Dates: start: 20180223

REACTIONS (10)
  - Agitation [Recovered/Resolved]
  - Abdominal distension [Not Recovered/Not Resolved]
  - Erythema [Recovered/Resolved]
  - Pharyngeal oedema [Recovered/Resolved]
  - Inflammation [Recovered/Resolved]
  - Blood pressure increased [Not Recovered/Not Resolved]
  - Urticaria [Recovered/Resolved]
  - Pruritus [Recovered/Resolved]
  - Anxiety [Not Recovered/Not Resolved]
  - Intentional product misuse [Not Recovered/Not Resolved]

NARRATIVE: CASE EVENT DATE: 20180224
